FAERS Safety Report 23696259 (Version 1)
Quarter: 2024Q2

REPORT INFORMATION
  Report Type: Spontaneous
  Country: GB (occurrence: GB)
  Receive Date: 20240402
  Receipt Date: 20240402
  Transmission Date: 20240715
  Serious: No
  Sender: FDA-Public Use
  Company Number: None

PATIENT
  Age: 78 Year
  Sex: Male
  Weight: 76 kg

DRUGS (26)
  1. QUETIAPINE FUMARATE [Suspect]
     Active Substance: QUETIAPINE FUMARATE
     Indication: Product used for unknown indication
     Dosage: 0.5 DOSAGE FORM, BID (1/2 TABLET TO BE TAKEN TWICE DAILY FOR 3 DAYS)
     Route: 065
     Dates: start: 20231115, end: 20231122
  2. ALENDRONIC ACID [Concomitant]
     Active Substance: ALENDRONIC ACID
     Indication: Product used for unknown indication
     Dosage: 1 DOSAGE FORM (ONE TO BE TAKEN ON THE SAME DAY EACH WEEK)
     Route: 065
     Dates: start: 20230601, end: 20231019
  3. APIXABAN [Concomitant]
     Active Substance: APIXABAN
     Indication: Thrombocytopenia
     Dosage: 1 DOSAGE FORM, BID
     Route: 065
     Dates: start: 20230601
  4. ASPIRIN [Concomitant]
     Active Substance: ASPIRIN
     Indication: Product used for unknown indication
     Dosage: 1 DOSAGE FORM, OD
     Route: 065
     Dates: start: 20230601
  5. ATORVASTATIN [Concomitant]
     Active Substance: ATORVASTATIN
     Indication: Product used for unknown indication
     Dosage: 1 DOSAGE FORM, QD
     Route: 065
     Dates: start: 20230601, end: 20231019
  6. BETNOVATE [Concomitant]
     Active Substance: BETAMETHASONE
     Indication: Product used for unknown indication
     Dosage: UNK (APPLY 2-3 TIMES DAILY TO AFFECTED AREAS)
     Route: 065
     Dates: start: 20231122, end: 20231202
  7. BUPRENORPHINE [Concomitant]
     Active Substance: BUPRENORPHINE
     Indication: Product used for unknown indication
     Dosage: UNK (APPLY ONE PATCH EACH WEEK AS DIRECTED)
     Route: 065
     Dates: start: 20231211, end: 20231212
  8. CALCIUM CARBONATE [Concomitant]
     Active Substance: CALCIUM CARBONATE
     Indication: Product used for unknown indication
     Dosage: 1 DOSAGE FORM, BID
     Route: 065
     Dates: start: 20230720, end: 20231019
  9. CLOBETASONE BUTYRATE [Concomitant]
     Active Substance: CLOBETASONE BUTYRATE
     Indication: Product used for unknown indication
     Dosage: UNK, TID ((APPLY TO BE TAKEN THREE TIMES DAILY FOR 10 DAYS))
     Route: 065
     Dates: start: 20231026, end: 20231105
  10. CLONAZEPAM [Concomitant]
     Active Substance: CLONAZEPAM
     Indication: Product used for unknown indication
     Dosage: 1 DOSAGE FORM, HS ((ONE AT BEDTIME))
     Route: 065
     Dates: start: 20230601, end: 20231019
  11. DOXYCYCLINE [Concomitant]
     Active Substance: DOXYCYCLINE
     Indication: Product used for unknown indication
     Dosage: 1 DOSAGE FORM, BID
     Route: 065
     Dates: start: 20231004, end: 20231018
  12. FAMOTIDINE [Concomitant]
     Active Substance: FAMOTIDINE
     Indication: Product used for unknown indication
     Dosage: 1 DOSAGE FORM (TAKE ONE IN THE EVENING)
     Route: 065
     Dates: start: 20230607
  13. FERROUS SULFATE [Concomitant]
     Active Substance: FERROUS SULFATE
     Indication: Product used for unknown indication
     Dosage: 1 DOSAGE FORM, TID
     Route: 065
     Dates: start: 20230601, end: 20231019
  14. GLYCOPYRROLATE [Concomitant]
     Active Substance: GLYCOPYRROLATE
     Indication: Product used for unknown indication
     Dosage: 200 MICROGRAM (200MICROGRAMS SC EVERY 4HOURS AS REQUIRED FOR S)
     Route: 065
     Dates: start: 20231018, end: 20231023
  15. HALOPERIDOL [Concomitant]
     Active Substance: HALOPERIDOL
     Indication: Product used for unknown indication
     Dosage: UNK, BID (TAKE 1.5 TO 3MG TWICE A DAY)
     Route: 065
     Dates: start: 20231129
  16. LORAZEPAM [Concomitant]
     Active Substance: LORAZEPAM
     Indication: Anxiety
     Dosage: UNK (MAX 4 TABLETS IN 24 HOURS)
     Route: 065
     Dates: start: 20231211
  17. LORAZEPAM [Concomitant]
     Active Substance: LORAZEPAM
     Indication: Agitation
  18. MIDAZOLAM [Concomitant]
     Active Substance: MIDAZOLAM
     Indication: Product used for unknown indication
     Dosage: UNK (2.5-5MG SC EVERY TWO HOURS AS REQUIRED FOR SEDA)
     Route: 065
     Dates: start: 20231018, end: 20231023
  19. MIRTAZAPINE [Concomitant]
     Active Substance: MIRTAZAPINE
     Indication: Product used for unknown indication
     Dosage: UNK, HS (1/2 TABLET AT NIGHT AND REVIEW 1-2 WEEKS)
     Route: 065
     Dates: start: 20230915, end: 20231115
  20. MONTELUKAST [Concomitant]
     Active Substance: MONTELUKAST SODIUM
     Indication: Product used for unknown indication
     Dosage: 1 DOSAGE FORM, HS
     Route: 065
     Dates: start: 20230601
  21. NITROFURANTOIN [Concomitant]
     Active Substance: NITROFURANTOIN
     Indication: Product used for unknown indication
     Dosage: 1 DOSAGE FORM, BID
     Route: 065
     Dates: start: 20231124, end: 20231201
  22. OXYCODONE HYDROCHLORIDE [Concomitant]
     Active Substance: OXYCODONE HYDROCHLORIDE
     Indication: Pain
     Dosage: UNK, PRN (2.5-5MG SC EVERY FOUR HOURS PRN)
     Route: 065
     Dates: start: 20231018, end: 20231023
  23. ACETAMINOPHEN [Concomitant]
     Active Substance: ACETAMINOPHEN
     Indication: Pain
     Dosage: UNK (TAKE 1 OR 2 4 TIMES/DAY WHEN REQUIED)
     Route: 065
     Dates: start: 20230621
  24. PREDNISOLONE [Concomitant]
     Active Substance: PREDNISOLONE
     Indication: Product used for unknown indication
     Dosage: 7 MILLIGRAM, QD ()AS DIRECTED (TOTAL DOSE 7MG DAILY)
     Route: 065
     Dates: start: 20230601
  25. ALBUTEROL [Concomitant]
     Active Substance: ALBUTEROL
     Indication: Product used for unknown indication
     Dosage: UNK (ONE OR TWO PUFFS TO BE INHALED UP TO FOUR TIMES)
     Dates: start: 20230601
  26. TRELEGY ELLIPTA [Concomitant]
     Active Substance: FLUTICASONE FUROATE\UMECLIDINIUM BROMIDE\VILANTEROL TRIFENATATE
     Indication: Product used for unknown indication
     Dosage: 1 DOSAGE FORM, OD (INHALE ONE DOSE DAILY AT THE SAME TIME EACH DAY)
     Dates: start: 20230601

REACTIONS (1)
  - Rash [Recovered/Resolved]
